FAERS Safety Report 22307475 (Version 1)
Quarter: 2023Q2

REPORT INFORMATION
  Report Type: Spontaneous
  Country: GR (occurrence: GR)
  Receive Date: 20230511
  Receipt Date: 20230511
  Transmission Date: 20230722
  Serious: Yes (Other)
  Sender: FDA-Public Use
  Company Number: GR-SUN PHARMACEUTICAL INDUSTRIES LTD-2023R1-385554

PATIENT

DRUGS (2)
  1. TINZAPARIN [Suspect]
     Active Substance: TINZAPARIN
     Indication: Anticoagulant therapy
     Dosage: 0.45 INTERNATIONAL UNIT, DAILY
     Route: 064
  2. ASPIRIN [Suspect]
     Active Substance: ASPIRIN
     Indication: Anticoagulant therapy
     Dosage: 100 MILLIGRAM, DAILY
     Route: 064

REACTIONS (3)
  - Haemodynamic instability [Recovering/Resolving]
  - Hypoxia [Recovering/Resolving]
  - Foetal exposure during pregnancy [Unknown]
